FAERS Safety Report 4568018-6 (Version None)
Quarter: 2005Q1

REPORT INFORMATION
  Report Type: 
  Country: None (occurrence: None)
  Receive Date: 20050128
  Receipt Date: 20050113
  Transmission Date: 20050727
  Serious: Yes (Other)
  Sender: FDA-Public Use
  Company Number: BRO-008289

PATIENT
  Age: 60 Year
  Sex: Female

DRUGS (1)
  1. IOPAMIDOL [Suspect]
     Dosage: 100 ML, IV
     Route: 042
     Dates: start: 20050105, end: 20050105

REACTIONS (2)
  - CYANOSIS [None]
  - TONIC CONVULSION [None]
